FAERS Safety Report 12633269 (Version 3)
Quarter: 2016Q3

REPORT INFORMATION
  Report Type: Spontaneous
  Country: US (occurrence: US)
  Receive Date: 20160808
  Receipt Date: 20160808
  Transmission Date: 20161109
  Serious: No
  Sender: FDA-Public Use
  Company Number: US-BEH-2016060237

PATIENT
  Sex: Female
  Weight: 126 kg

DRUGS (33)
  1. HIZENTRA [Suspect]
     Active Substance: HUMAN IMMUNOGLOBULIN G
     Route: 058
  2. LASIX [Concomitant]
     Active Substance: FUROSEMIDE
  3. LISINOPRIL. [Concomitant]
     Active Substance: LISINOPRIL
  4. ADVAIR HFA [Concomitant]
     Active Substance: FLUTICASONE PROPIONATE\SALMETEROL XINAFOATE
  5. XOLAIR [Concomitant]
     Active Substance: OMALIZUMAB
  6. LIDOCAINE. [Concomitant]
     Active Substance: LIDOCAINE
  7. PROMETHAZINE [Concomitant]
     Active Substance: PROMETHAZINE\PROMETHAZINE HYDROCHLORIDE
  8. VITAMIN D [Concomitant]
     Active Substance: CHOLECALCIFEROL
  9. HIZENTRA [Suspect]
     Active Substance: HUMAN IMMUNOGLOBULIN G
     Route: 058
     Dates: start: 20130516
  10. PHENERGAN [Concomitant]
     Active Substance: PROMETHAZINE HYDROCHLORIDE
  11. SINGULAIR [Concomitant]
     Active Substance: MONTELUKAST SODIUM
  12. AMLODIPINE [Concomitant]
     Active Substance: AMLODIPINE BESYLATE
  13. LOPRESSOR [Concomitant]
     Active Substance: METOPROLOL TARTRATE
  14. VERAMYST [Concomitant]
     Active Substance: FLUTICASONE FUROATE
  15. EPIPEN [Concomitant]
     Active Substance: EPINEPHRINE
  16. ZOCOR [Concomitant]
     Active Substance: SIMVASTATIN
  17. ASTEPRO [Concomitant]
     Active Substance: AZELASTINE HYDROCHLORIDE
  18. VENTOLIN [Concomitant]
     Active Substance: ALBUTEROL SULFATE
  19. KLOR-CON [Concomitant]
     Active Substance: POTASSIUM CHLORIDE
  20. PREDNISONE. [Concomitant]
     Active Substance: PREDNISONE
  21. TRAMADOL. [Concomitant]
     Active Substance: TRAMADOL
  22. NEXIUM [Concomitant]
     Active Substance: ESOMEPRAZOLE MAGNESIUM
  23. ALBUTEROL. [Concomitant]
     Active Substance: ALBUTEROL
  24. VITAMIN B [Concomitant]
     Active Substance: VITAMIN B
  25. LOMOTIL [Concomitant]
     Active Substance: ATROPINE SULFATE\DIPHENOXYLATE HYDROCHLORIDE
  26. METFORMIN [Concomitant]
     Active Substance: METFORMIN HYDROCHLORIDE
  27. HIZENTRA [Suspect]
     Active Substance: HUMAN IMMUNOGLOBULIN G
     Indication: IMMUNODEFICIENCY COMMON VARIABLE
     Route: 058
  28. ACETAMINOPHEN. [Concomitant]
     Active Substance: ACETAMINOPHEN
  29. DIPHENHYDRAMINE. [Concomitant]
     Active Substance: DIPHENHYDRAMINE
  30. MOBIC [Concomitant]
     Active Substance: MELOXICAM
  31. FIORICET [Concomitant]
     Active Substance: ACETAMINOPHEN\BUTALBITAL\CAFFEINE
  32. ZOLOFT [Concomitant]
     Active Substance: SERTRALINE HYDROCHLORIDE
  33. FLEXERIL [Concomitant]
     Active Substance: CYCLOBENZAPRINE HYDROCHLORIDE

REACTIONS (1)
  - Dyspepsia [Unknown]
